FAERS Safety Report 25041018 (Version 1)
Quarter: 2025Q1

REPORT INFORMATION
  Report Type: Spontaneous
  Country: US (occurrence: None)
  Receive Date: 20250305
  Receipt Date: 20250305
  Transmission Date: 20250408
  Serious: Yes (Other)
  Sender: FDA-CTU
  Company Number: None

PATIENT
  Age: 28 Year
  Sex: Female
  Weight: 54 kg

DRUGS (8)
  1. LACOSAMIDE [Suspect]
     Active Substance: LACOSAMIDE
     Indication: Epilepsy
     Dates: start: 20250224, end: 20250303
  2. LEVETIRACETAM [Concomitant]
     Active Substance: LEVETIRACETAM
  3. LAMOTRIGINE [Concomitant]
     Active Substance: LAMOTRIGINE
  4. UBRELVY [Concomitant]
     Active Substance: UBROGEPANT
  5. CLONAZEPAM [Concomitant]
     Active Substance: CLONAZEPAM
  6. IRON [Concomitant]
     Active Substance: IRON
  7. VITAMIN D [Concomitant]
     Active Substance: VITAMIN D NOS
  8. VITAMIN E [Concomitant]
     Active Substance: .ALPHA.-TOCOPHEROL

REACTIONS (4)
  - Syncope [None]
  - Temporomandibular pain and dysfunction syndrome [None]
  - Pain [None]
  - Trismus [None]

NARRATIVE: CASE EVENT DATE: 20250303
